FAERS Safety Report 5928302-8 (Version None)
Quarter: 2008Q4

REPORT INFORMATION
  Report Type: 
  Country: None (occurrence: None)
  Receive Date: 20081022
  Receipt Date: 20081022
  Transmission Date: 20090506
  Serious: Yes (Other)
  Sender: FDA-Public Use
  Company Number: None

PATIENT
  Sex: Female
  Weight: 104.6 kg

DRUGS (1)
  1. RITUXAN [Suspect]
     Indication: CHEMOTHERAPY
     Dosage: 845MG IV
     Route: 042
     Dates: start: 20080717, end: 20080717

REACTIONS (2)
  - PRURITUS [None]
  - URTICARIA [None]
